FAERS Safety Report 5744400-6 (Version None)
Quarter: 2008Q2

REPORT INFORMATION
  Report Type: 
  Country: None (occurrence: None)
  Receive Date: 20080520
  Receipt Date: 20080514
  Transmission Date: 20081010
  Serious: Yes (Hospitalization)
  Sender: FDA-Public Use
  Company Number: US-ELI_LILLY_AND_COMPANY-US200805002848

PATIENT
  Sex: Female

DRUGS (4)
  1. HUMALOG [Suspect]
     Route: 058
  2. HUMALOG [Suspect]
     Route: 058
  3. HUMALOG [Suspect]
     Dosage: 24 U, UNK
     Route: 058
     Dates: start: 20080514, end: 20080514
  4. HUMALOG [Suspect]
     Dosage: 12 U, UNK
     Dates: start: 20080514, end: 20080514

REACTIONS (5)
  - BLOOD GLUCOSE INCREASED [None]
  - DRUG INEFFECTIVE [None]
  - INCORRECT ROUTE OF DRUG ADMINISTRATION [None]
  - KETOACIDOSIS [None]
  - SKIN NODULE [None]
